FAERS Safety Report 5703385-9 (Version None)
Quarter: 2008Q2

REPORT INFORMATION
  Report Type: 
  Country: None (occurrence: None)
  Receive Date: 20080411
  Receipt Date: 20080401
  Transmission Date: 20081010
  Serious: Yes (Other)
  Sender: FDA-Public Use
  Company Number: US-PFIZER INC-2008028683

PATIENT
  Age: 71 Year
  Sex: Female
  Weight: 61 kg

DRUGS (9)
  1. SUTENT [Suspect]
     Indication: RENAL CELL CARCINOMA
     Dosage: DAILY DOSE:50MG
     Route: 048
     Dates: start: 20071221, end: 20080119
  2. FOSAMAX [Concomitant]
  3. VALIUM [Concomitant]
  4. COMBIVENT [Concomitant]
  5. TENORETIC 100 [Concomitant]
  6. MAXZIDE [Concomitant]
  7. PLAVIX [Concomitant]
  8. NITROGLYCERIN [Concomitant]
  9. FLEXERIL [Concomitant]
     Dates: start: 20071201, end: 20080101

REACTIONS (1)
  - HYPOGLYCAEMIA [None]
